FAERS Safety Report 6912564-4 (Version None)
Quarter: 2010Q3

REPORT INFORMATION
  Report Type: 
  Country: None (occurrence: None)
  Receive Date: 20100806
  Receipt Date: 20080730
  Transmission Date: 20110219
  Serious: No
  Sender: FDA-Public Use
  Company Number: US-PFIZER INC-2008065112

PATIENT
  Sex: Female
  Weight: 62.3 kg

DRUGS (2)
  1. DILANTIN [Suspect]
     Indication: CONVULSION
     Dates: start: 19880101
  2. METFORMIN HCL [Concomitant]

REACTIONS (3)
  - ABDOMINAL PAIN [None]
  - CONFUSIONAL STATE [None]
  - COORDINATION ABNORMAL [None]
